FAERS Safety Report 15432162 (Version 1)
Quarter: 2018Q3

REPORT INFORMATION
  Report Type: Spontaneous
  Country: DE (occurrence: DE)
  Receive Date: 20180926
  Receipt Date: 20180926
  Transmission Date: 20181010
  Serious: Yes (Congenital Anomaly, Other)
  Sender: FDA-Public Use
  Company Number: DE-ALLERGAN-1846447US

PATIENT
  Age: 1 Day
  Sex: Male
  Weight: 3.43 kg

DRUGS (6)
  1. ESCITALOPRAM OXALATE ? BP [Suspect]
     Active Substance: ESCITALOPRAM OXALATE
     Indication: MATERNAL EXPOSURE TIMING UNSPECIFIED
     Dosage: 5 MG, QD (0. ? 40.2. GESTATIONAL WEEK)
     Route: 064
     Dates: end: 20171226
  2. ESCITALOPRAM OXALATE ? BP [Suspect]
     Active Substance: ESCITALOPRAM OXALATE
     Dosage: 10 MG, QD (0. ? 40.2. GESTATIONAL WEEK)
     Route: 064
     Dates: start: 20170319
  3. QUETIAPINE. [Suspect]
     Active Substance: QUETIAPINE
     Indication: MATERNAL EXPOSURE TIMING UNSPECIFIED
     Dosage: 50 MG, QD (VARYING DOSAGE BETWEEN 25 AND 50 MG/D/ 0. ? 21.1. GESTATIONAL WEEK )
     Route: 064
     Dates: start: 20170319, end: 20170814
  4. LAMICTAL [Suspect]
     Active Substance: LAMOTRIGINE
     Indication: MATERNAL EXPOSURE TIMING UNSPECIFIED
     Dosage: 125 MG, QD SLOWLY REDUCED (0. ? 12.4. GESTATIONAL WEEK)
     Route: 064
  5. ESCITALOPRAM OXALATE ? BP [Suspect]
     Active Substance: ESCITALOPRAM OXALATE
     Dosage: 20 MG, QD (0. ? 40.2. GESTATIONAL WEEK)
     Route: 064
     Dates: start: 20170319
  6. FEMIBION [Concomitant]
     Active Substance: VITAMINS
     Indication: MATERNAL EXPOSURE TIMING UNSPECIFIED
     Route: 064

REACTIONS (6)
  - Respiratory disorder neonatal [Recovered/Resolved]
  - Patent ductus arteriosus [Unknown]
  - Congenital choroid plexus cyst [Unknown]
  - Foetal exposure during pregnancy [Unknown]
  - Atrial septal defect [Unknown]
  - Ventricular septal defect [Unknown]

NARRATIVE: CASE EVENT DATE: 20171226
